FAERS Safety Report 10307902 (Version 2)
Quarter: 2014Q3

REPORT INFORMATION
  Report Type: Report from Study
  Country: JP (occurrence: JP)
  Receive Date: 20140716
  Receipt Date: 20140918
  Transmission Date: 20150326
  Serious: Yes (Death, Hospitalization)
  Sender: FDA-Public Use
  Company Number: PHHY2014JP085830

PATIENT
  Age: 76 Year
  Sex: Male
  Weight: 54 kg

DRUGS (15)
  1. ICL670A [Suspect]
     Active Substance: DEFERASIROX
     Indication: PROPHYLAXIS
  2. CELECOX [Concomitant]
     Active Substance: CELECOXIB
     Dosage: 200 MG, UNK
     Route: 048
     Dates: start: 20081120, end: 20100216
  3. ICL670A [Suspect]
     Active Substance: DEFERASIROX
     Indication: IRON OVERLOAD
     Dosage: 500 MG, DAILY
     Route: 048
     Dates: start: 20091120, end: 20111124
  4. ULCERLMIN [Concomitant]
     Active Substance: SUCRALFATE
     Indication: PROPHYLAXIS
     Dosage: 2700 MG, UNK
     Route: 048
     Dates: start: 20081120
  5. PREDONINE [Concomitant]
     Active Substance: PREDNISOLONE\PREDNISOLONE ACETATE\PREDNISOLONE SODIUM SUCCINATE
     Indication: MYELODYSPLASTIC SYNDROME
     Dosage: 10 MG, UNK
     Route: 048
     Dates: start: 20081120, end: 20090310
  6. ICL670A [Suspect]
     Active Substance: DEFERASIROX
     Indication: MYELODYSPLASTIC SYNDROME
     Dosage: 500 MG, PER 2 DAYS
     Route: 048
     Dates: start: 20081120, end: 20091119
  7. MUCODYNE [Concomitant]
     Active Substance: CARBOCYSTEINE
     Dosage: 1500 MG, UNK
     Route: 048
     Dates: start: 20091120
  8. PRIMOBOLAN-DEPOT [Concomitant]
     Active Substance: METHENOLONE ENANTHATE
     Indication: MYELODYSPLASTIC SYNDROME
     Dosage: 15 MG, UNK
     Route: 048
     Dates: start: 20090311, end: 20111124
  9. SG [Concomitant]
     Indication: PROPHYLAXIS
     Dosage: 1 G, UNK
     Route: 048
     Dates: start: 20091120
  10. ULCERLMIN [Concomitant]
     Active Substance: SUCRALFATE
     Dosage: 300 MG, UNK
     Route: 048
     Dates: end: 20121121
  11. GLORIAMIN [Concomitant]
     Indication: PROPHYLAXIS
     Dosage: 1.5 G, UNK
     Route: 048
     Dates: start: 20081120, end: 20091119
  12. GASTER [Concomitant]
     Active Substance: FAMOTIDINE
     Indication: PROPHYLAXIS
     Dosage: 20 MG, UNK
     Route: 048
     Dates: start: 20081120
  13. RIZE [Concomitant]
     Active Substance: CLOTIAZEPAM
     Dosage: 15 MG, UNK
     Route: 048
     Dates: start: 20081120
  14. HOKUNALIN [Concomitant]
     Active Substance: TULOBUTEROL
     Indication: PROPHYLAXIS
     Dosage: 1 MG, UNK
     Dates: start: 20091120
  15. HARNAL [Concomitant]
     Active Substance: TAMSULOSIN HYDROCHLORIDE
     Dosage: 0.2 MG, UNK
     Route: 048
     Dates: start: 20081120, end: 20100707

REACTIONS (16)
  - Cellulitis [Recovering/Resolving]
  - Serum ferritin increased [Unknown]
  - Platelet count decreased [Unknown]
  - Lymphocyte count increased [Unknown]
  - Monocyte count abnormal [Unknown]
  - Aspartate aminotransferase abnormal [Unknown]
  - Haemoglobin decreased [Unknown]
  - Haematocrit decreased [Unknown]
  - Bone pain [Recovering/Resolving]
  - Eosinophil count abnormal [Unknown]
  - Alanine aminotransferase abnormal [Unknown]
  - Cerebral haemorrhage [Fatal]
  - Basophil count abnormal [Unknown]
  - Neutrophil count decreased [Unknown]
  - Red blood cell count decreased [Unknown]
  - White blood cell count decreased [Unknown]

NARRATIVE: CASE EVENT DATE: 20130617
